FAERS Safety Report 18942352 (Version 1)
Quarter: 2021Q1

REPORT INFORMATION
  Report Type: Spontaneous
  Country: IT (occurrence: IT)
  Receive Date: 20210225
  Receipt Date: 20210225
  Transmission Date: 20210420
  Serious: Yes (Other)
  Sender: FDA-Public Use
  Company Number: IT-BRACCO-2021IT00635

PATIENT
  Age: 7 Day

DRUGS (1)
  1. IOPAMIRO [Suspect]
     Active Substance: IOPAMIDOL
     Indication: DIAGNOSTIC PROCEDURE
     Dosage: 0.3 ML OF 30% IOPAMIDOL

REACTIONS (1)
  - Hypothyroidism [Recovered/Resolved]
